FAERS Safety Report 18250536 (Version 3)
Quarter: 2021Q1

REPORT INFORMATION
  Report Type: Spontaneous
  Country: US (occurrence: US)
  Receive Date: 20200909
  Receipt Date: 20210203
  Transmission Date: 20210419
  Serious: No
  Sender: FDA-Public Use
  Company Number: US-PFIZER INC-2020348420

PATIENT
  Age: 72 Year
  Sex: Female

DRUGS (1)
  1. IBRANCE [Suspect]
     Active Substance: PALBOCICLIB
     Indication: BREAST CANCER FEMALE
     Dosage: 100 MG DAILY, CYCLIC, FOR 21 DAYS ON, 7 DAYS OFF ON A 28 DAY CYCLE

REACTIONS (2)
  - Onychoclasis [Unknown]
  - Alopecia [Unknown]
